FAERS Safety Report 6682522-6 (Version None)
Quarter: 2010Q2

REPORT INFORMATION
  Report Type: 
  Country: None (occurrence: None)
  Receive Date: 20100415
  Receipt Date: 20100409
  Transmission Date: 20101027
  Serious: Yes (Other)
  Sender: FDA-Public Use
  Company Number: US-ASTRAZENECA-2008UW26217

PATIENT
  Sex: Female

DRUGS (1)
  1. NEXIUM [Suspect]
     Indication: HIATUS HERNIA
     Route: 048

REACTIONS (4)
  - HIATUS HERNIA [None]
  - JOINT DISLOCATION [None]
  - MALAISE [None]
  - PERNICIOUS ANAEMIA [None]
